FAERS Safety Report 5168300-8 (Version None)
Quarter: 2006Q4

REPORT INFORMATION
  Report Type: 
  Country: None (occurrence: None)
  Receive Date: 20061208
  Receipt Date: 20061128
  Transmission Date: 20070319
  Serious: Yes (Death)
  Sender: FDA-Public Use
  Company Number: BE-MERCK-0611BEL00039

PATIENT
  Age: 84 Year
  Sex: Female
  Weight: 52 kg

DRUGS (4)
  1. AGGRASTAT [Suspect]
     Indication: ANGINA UNSTABLE
     Route: 042
     Dates: start: 20060822
  2. METFORMIN [Concomitant]
     Indication: DIABETES MELLITUS
     Route: 048
  3. CLOPIDOGREL BISULFATE [Concomitant]
     Indication: ANGINA UNSTABLE
     Route: 065
  4. HEPARIN LOW MOLECULAR WEIGHT [Concomitant]
     Indication: ANGINA UNSTABLE
     Route: 065

REACTIONS (1)
  - DEATH [None]
